FAERS Safety Report 5006459-3 (Version None)
Quarter: 2006Q2

REPORT INFORMATION
  Report Type: 
  Country: None (occurrence: None)
  Receive Date: 20060519
  Receipt Date: 20051228
  Transmission Date: 20061013
  Serious: Yes (Other)
  Sender: FDA-Public Use
  Company Number: JP-BRISTOL-MYERS SQUIBB COMPANY-13260583

PATIENT
  Age: 60 Year
  Sex: Male

DRUGS (9)
  1. BRIPLATIN [Suspect]
     Indication: HYPOPHARYNGEAL CANCER
     Route: 041
     Dates: start: 20020717, end: 20020717
  2. TAXOTERE [Suspect]
     Indication: HYPOPHARYNGEAL CANCER
     Route: 013
     Dates: start: 20020716, end: 20020716
  3. FLUOROURACIL [Suspect]
     Indication: HYPOPHARYNGEAL CANCER
     Route: 041
     Dates: start: 20020717
  4. FOSMICIN [Concomitant]
     Route: 041
     Dates: start: 20020716, end: 20020719
  5. DECADRON SRC [Concomitant]
     Indication: PREMEDICATION
     Route: 041
     Dates: start: 20020716, end: 20020717
  6. ZOFRAN [Concomitant]
     Indication: PREMEDICATION
     Route: 041
     Dates: start: 20020716, end: 20020719
  7. SOLU-CORTEF [Concomitant]
     Indication: PREMEDICATION
     Route: 013
     Dates: start: 20020716, end: 20020716
  8. MIRACLID [Concomitant]
     Route: 041
     Dates: start: 20020717, end: 20020719
  9. TAGAMET [Concomitant]
     Indication: PREMEDICATION
     Route: 041
     Dates: start: 20020716, end: 20020720

REACTIONS (2)
  - ANOREXIA [None]
  - LARYNGOPHARYNGITIS [None]
